FAERS Safety Report 7769873-9 (Version None)
Quarter: 2011Q3

REPORT INFORMATION
  Report Type: 
  Country: None (occurrence: None)
  Receive Date: 20110922
  Receipt Date: 20100803
  Transmission Date: 20111222
  Serious: No
  Sender: FDA-Public Use
  Company Number: US-ASTRAZENECA-2010SE36245

PATIENT
  Age: 19 Year
  Sex: Male
  Weight: 79.4 kg

DRUGS (2)
  1. SEROQUEL XR [Suspect]
     Indication: SCHIZOAFFECTIVE DISORDER
     Route: 048
     Dates: start: 20100703
  2. TRAZODONE HCL [Concomitant]

REACTIONS (1)
  - DRUG SCREEN [None]
